FAERS Safety Report 5914842-4 (Version None)
Quarter: 2008Q4

REPORT INFORMATION
  Report Type: 
  Country: None (occurrence: None)
  Receive Date: 20081010
  Receipt Date: 20081001
  Transmission Date: 20090506
  Serious: Yes (Hospitalization, Other)
  Sender: FDA-Public Use
  Company Number: PHHY2008JP18935

PATIENT
  Sex: Female
  Weight: 51 kg

DRUGS (5)
  1. LOCHOL [Suspect]
     Indication: LIPIDS ABNORMAL
     Dosage: 30 MG/DAY
     Route: 048
     Dates: start: 20080717, end: 20080820
  2. LOCHOL [Suspect]
     Indication: HYPERCHOLESTEROLAEMIA
  3. ALTAT [Concomitant]
     Indication: GASTRITIS
     Dosage: 150 MG
     Route: 048
     Dates: start: 20080717, end: 20080820
  4. GASTROM [Concomitant]
     Indication: GASTRITIS
     Dosage: 3.0 G
     Route: 048
     Dates: start: 20080717, end: 20080820
  5. DEPAS [Concomitant]
     Indication: INSOMNIA
     Dosage: 1 MG
     Route: 048

REACTIONS (6)
  - BACK PAIN [None]
  - BLOOD LACTATE DEHYDROGENASE INCREASED [None]
  - EOSINOPHIL COUNT INCREASED [None]
  - GASTRITIS [None]
  - HEPATIC FUNCTION ABNORMAL [None]
  - MALAISE [None]
